FAERS Safety Report 9210077 (Version 1)
Quarter: 2012Q4

REPORT INFORMATION
  Report Type: 
  Country: US (occurrence: US)
  Receive Date: 20120903
  Receipt Date: 20120903
  Transmission Date: 20130627
  Serious: Yes (Hospitalization)
  Sender: FDA-Public Use
  Company Number: PHEH2012US017041

PATIENT
  Age: 59 None
  Sex: Male

DRUGS (1)
  1. TASIGNA [Suspect]
     Dosage: 300 mg, BID
     Route: 048
     Dates: start: 20120321, end: 20120810

REACTIONS (2)
  - Acute myeloid leukaemia [Unknown]
  - Drug ineffective [Unknown]
